FAERS Safety Report 16904201 (Version 1)
Quarter: 2019Q4

REPORT INFORMATION
  Report Type: Spontaneous
  Country: US (occurrence: US)
  Receive Date: 20191010
  Receipt Date: 20191010
  Transmission Date: 20200122
  Serious: No
  Sender: FDA-Public Use
  Company Number: US-JNJFOC-20191009734

PATIENT
  Age: 39 Year
  Sex: Female
  Weight: 45.4 kg

DRUGS (1)
  1. STELARA [Suspect]
     Active Substance: USTEKINUMAB
     Indication: CROHN^S DISEASE
     Route: 058
     Dates: start: 20190602

REACTIONS (2)
  - Product dose omission [Unknown]
  - Product storage error [Unknown]

NARRATIVE: CASE EVENT DATE: 20191001
